FAERS Safety Report 8588101-8 (Version None)
Quarter: 2012Q3

REPORT INFORMATION
  Report Type: 
  Country: None (occurrence: None)
  Receive Date: 20120813
  Receipt Date: 20120808
  Transmission Date: 20120928
  Serious: No
  Sender: FDA-Public Use
  Company Number: US-PFIZER INC-2012193664

PATIENT
  Age: 69 Year
  Sex: Female
  Weight: 83.9 kg

DRUGS (5)
  1. ADVIL [Suspect]
     Indication: TOOTH INFECTION
     Dosage: 600 MG, 4X/DAY
     Route: 048
     Dates: start: 20120802, end: 20120807
  2. METFORMIN [Concomitant]
     Indication: DIABETES MELLITUS
     Dosage: UNK
  3. PRAVASTATIN [Concomitant]
     Indication: BLOOD CHOLESTEROL ABNORMAL
     Dosage: 20 MG, DAILY
  4. AMITRIPTYLINE [Concomitant]
     Indication: NEUROPATHY PERIPHERAL
     Dosage: UNK
  5. LEVOTHYROXINE SODIUM [Concomitant]
     Indication: THYROID DISORDER
     Dosage: 50 MG, DAILY

REACTIONS (1)
  - BACK PAIN [None]
